FAERS Safety Report 5731151-7 (Version None)
Quarter: 2008Q2

REPORT INFORMATION
  Report Type: 
  Country: None (occurrence: None)
  Receive Date: 20080505
  Receipt Date: 20080429
  Transmission Date: 20081010
  Serious: Yes (Hospitalization)
  Sender: FDA-Public Use
  Company Number: 2008SP007075

PATIENT
  Age: 59 Year
  Sex: Female
  Weight: 47 kg

DRUGS (5)
  1. PEG-INTRON [Suspect]
     Indication: HEPATITIS C
     Dosage: 80 MCG; QW; SC
     Route: 058
     Dates: start: 20070430, end: 20070514
  2. REBETOL [Suspect]
     Indication: HEPATITIS C
     Dosage: 400 MG; BID;
     Dates: start: 20070430, end: 20070514
  3. OSTEO PLUS [Concomitant]
  4. VOTUM /01635402/ [Concomitant]
  5. CONCOR /00802601/ [Concomitant]

REACTIONS (4)
  - BLOOD PRESSURE ABNORMAL [None]
  - CARDIAC FIBRILLATION [None]
  - DISCOMFORT [None]
  - FEAR [None]
